FAERS Safety Report 8092485-7 (Version None)
Quarter: 2012Q1

REPORT INFORMATION
  Report Type: 
  Country: None (occurrence: None)
  Receive Date: 20120128
  Receipt Date: 20110826
  Transmission Date: 20120608
  Serious: No
  Sender: FDA-Public Use
  Company Number: US-ABBOTT-11P-163-0849676-00

PATIENT
  Age: 60 Year
  Sex: Female

DRUGS (13)
  1. HYDROCHLOROTHIAZIDE [Concomitant]
     Indication: PRODUCT USED FOR UNKNOWN INDICATION
     Dosage: DAILY
  2. GABAPENTIN [Concomitant]
     Indication: BACK PAIN
     Dosage: 2 TABLETS DAILY
  3. FLEXERIL [Concomitant]
     Indication: PRODUCT USED FOR UNKNOWN INDICATION
  4. VICODAN [Concomitant]
     Indication: PAIN
     Dosage: 5-500MG BID
  5. PLAQUENIL [Concomitant]
     Indication: RHEUMATOID ARTHRITIS
     Dosage: BID
  6. NAPROXEN (ALEVE) [Concomitant]
     Indication: PAIN
     Dosage: 2 TABLETS DAILY
  7. HUMIRA [Suspect]
     Indication: RHEUMATOID ARTHRITIS
     Dates: start: 20110506
  8. MULTI-VITAMIN [Concomitant]
     Indication: PRODUCT USED FOR UNKNOWN INDICATION
     Dosage: DAILY
  9. LISINOPRIL [Concomitant]
     Indication: HYPERTENSION
     Dosage: DAILY
  10. HUMALOG [Concomitant]
     Indication: PRODUCT USED FOR UNKNOWN INDICATION
     Dosage: WITH BREAKFAST AND LUNCH
  11. METFORMIN HCL [Concomitant]
     Indication: DIABETES PROPHYLAXIS
  12. CRESTOR [Concomitant]
     Indication: BLOOD CHOLESTEROL INCREASED
     Dosage: DAILY
  13. LANTUS [Concomitant]
     Indication: DIABETES MELLITUS
     Dosage: 30 UNITS IN MORNING, 50 UNITS IN PM

REACTIONS (1)
  - INJECTION SITE PAIN [None]
